FAERS Safety Report 5493223-4 (Version None)
Quarter: 2007Q4

REPORT INFORMATION
  Report Type: 
  Country: None (occurrence: None)
  Receive Date: 20071023
  Receipt Date: 20071017
  Transmission Date: 20080405
  Serious: Yes (Death, Life-Threatening)
  Sender: FDA-Public Use
  Company Number: B0492136A

PATIENT
  Age: 4 Week
  Sex: Male
  Weight: 3.5 kg

DRUGS (10)
  1. ZIDOVUDINE [Suspect]
     Dosage: 12MG TWICE PER DAY
     Route: 048
     Dates: start: 20070314, end: 20070404
  2. LAMIVUDINE [Suspect]
     Dosage: 6MG TWICE PER DAY
     Route: 048
     Dates: start: 20070314, end: 20070404
  3. NELFINAVIR [Suspect]
     Dosage: 150MG TWICE PER DAY
     Route: 048
     Dates: start: 20070314, end: 20070404
  4. AMPICILLIN [Concomitant]
     Dates: start: 20070404
  5. GENTAMICIN [Concomitant]
     Dates: start: 20070404
  6. CLOXACILLIN SODIUM [Concomitant]
     Dates: start: 20070404
  7. CO-TRIMOXAZOLE [Concomitant]
     Dates: start: 20070404
  8. PANADOL [Concomitant]
     Dates: start: 20070404
  9. ACYCLOVIR [Concomitant]
     Dates: start: 20070404
  10. MYCOSTATIN [Concomitant]
     Dates: start: 20070404

REACTIONS (14)
  - BLOOD SODIUM DECREASED [None]
  - CELLULITIS GANGRENOUS [None]
  - EOSINOPHIL COUNT DECREASED [None]
  - GASTROENTERITIS [None]
  - HAEMATOCRIT DECREASED [None]
  - HAEMOGLOBIN DECREASED [None]
  - LYMPHOCYTE COUNT DECREASED [None]
  - MONOCYTE COUNT DECREASED [None]
  - NEUTROPENIA [None]
  - NEUTROPHIL COUNT DECREASED [None]
  - PNEUMONIA [None]
  - RED BLOOD CELL COUNT DECREASED [None]
  - SEPSIS [None]
  - WHITE BLOOD CELL COUNT DECREASED [None]
